FAERS Safety Report 6035910-5 (Version None)
Quarter: 2009Q1

REPORT INFORMATION
  Report Type: 
  Country: None (occurrence: None)
  Receive Date: 20090113
  Receipt Date: 20090109
  Transmission Date: 20090719
  Serious: Yes (Hospitalization)
  Sender: FDA-Public Use
  Company Number: A0754655A

PATIENT
  Age: 68 Year
  Sex: Female
  Weight: 63.6 kg

DRUGS (1)
  1. AVANDIA [Suspect]
     Dosage: 2MG PER DAY
     Route: 065
     Dates: start: 20070503, end: 20070801

REACTIONS (1)
  - MYOCARDIAL INFARCTION [None]
